FAERS Safety Report 6296067-9 (Version None)
Quarter: 2009Q3

REPORT INFORMATION
  Report Type: 
  Country: None (occurrence: None)
  Receive Date: 20090804
  Receipt Date: 20090731
  Transmission Date: 20100115
  Serious: Yes (Death, Congenital Anomaly)
  Sender: FDA-Public Use
  Company Number: NZ-ASTRAZENECA-2009SE06419

PATIENT
  Age: 0 Week
  Sex: Male
  Weight: 1.6 kg

DRUGS (6)
  1. TAMOXIFEN [Suspect]
     Dosage: TAKEN INTERMITTENLY
     Route: 064
  2. HERCEPTIN [Suspect]
     Route: 064
  3. METHADONE [Concomitant]
     Route: 064
  4. NIFEDIPINE [Concomitant]
  5. AMOXICILLIN [Concomitant]
  6. STEROIDS [Concomitant]

REACTIONS (3)
  - BRONCHOPULMONARY DYSPLASIA [None]
  - RENAL FAILURE CHRONIC [None]
  - RESPIRATORY ARREST [None]
